FAERS Safety Report 5142704-1 (Version None)
Quarter: 2006Q4

REPORT INFORMATION
  Report Type: 
  Country: None (occurrence: None)
  Receive Date: 20061027
  Receipt Date: 20061016
  Transmission Date: 20070319
  Serious: Yes (Hospitalization)
  Sender: FDA-Public Use
  Company Number: US200608005945

PATIENT
  Age: 53 Year
  Sex: Female

DRUGS (4)
  1. ZYPREXA [Suspect]
     Dates: start: 20030101
  2. ABILIFY [Concomitant]
  3. SEROQUEL [Concomitant]
  4. HYDROCHLOROTHIAZIDE [Concomitant]

REACTIONS (2)
  - CATARACT DIABETIC [None]
  - DIABETES MELLITUS [None]
